FAERS Safety Report 9254741 (Version 1)
Quarter: 2013Q2

REPORT INFORMATION
  Report Type: Spontaneous
  Country: US (occurrence: None)
  Receive Date: 20130422
  Receipt Date: 20130422
  Transmission Date: 20140414
  Serious: Yes (Hospitalization)
  Sender: FDA-Public Use
  Company Number: None

PATIENT
  Age: 57 Year
  Sex: Male
  Weight: 66.3 kg

DRUGS (8)
  1. ALIMTA [Suspect]
     Indication: PROSTATE CANCER METASTATIC
     Dosage: 875 IV DAY 1 AND 15
     Route: 042
     Dates: start: 20130219, end: 20130306
  2. TAXOTERE [Suspect]
     Dosage: 70 MG IV ON DAY 1 AND 15
     Route: 042
     Dates: start: 20130219, end: 20130306
  3. COLACE [Concomitant]
  4. MORPHINE [Concomitant]
  5. VITAMIN B12 [Concomitant]
  6. FOLIC ACID [Concomitant]
  7. DEXAMETHASONE [Concomitant]
  8. MORPHINE [Concomitant]

REACTIONS (4)
  - Tachycardia [None]
  - Neutrophil count decreased [None]
  - Pyrexia [None]
  - Drug hypersensitivity [None]
